APPROVED DRUG PRODUCT: OLMESARTAN MEDOXOMIL AND HYDROCHLOROTHIAZIDE
Active Ingredient: HYDROCHLOROTHIAZIDE; OLMESARTAN MEDOXOMIL
Strength: 12.5MG;20MG
Dosage Form/Route: TABLET;ORAL
Application: A078827 | Product #001
Applicant: NATCO PHARMA USA LLC
Approved: Oct 26, 2016 | RLD: No | RS: No | Type: DISCN